FAERS Safety Report 19462303 (Version 1)
Quarter: 2021Q2

REPORT INFORMATION
  Report Type: Spontaneous
  Country: US (occurrence: US)
  Receive Date: 20210625
  Receipt Date: 20210625
  Transmission Date: 20210717
  Serious: Yes (Other)
  Sender: FDA-Public Use
  Company Number: US-PFIZER INC-2021694847

PATIENT
  Age: 84 Year
  Sex: Male
  Weight: 78.93 kg

DRUGS (7)
  1. VITAMIN D [VITAMIN D NOS] [Concomitant]
     Active Substance: VITAMIN D NOS
  2. CETIA [Concomitant]
     Dosage: 10 MG, 1X/DAY
     Route: 048
  3. RUXIENCE [Suspect]
     Active Substance: RITUXIMAB-PVVR
     Dosage: 200 MG
     Dates: start: 20210609
  4. SINGULAIR [Concomitant]
     Active Substance: MONTELUKAST SODIUM
  5. RUXIENCE [Suspect]
     Active Substance: RITUXIMAB-PVVR
     Indication: HAIRY CELL LEUKAEMIA
     Dosage: 500 MG
     Dates: start: 20210609
  6. IRON [Concomitant]
     Active Substance: IRON
  7. WARFARIN [Concomitant]
     Active Substance: WARFARIN
     Dosage: 5 MG, 1X/DAY
     Route: 048

REACTIONS (5)
  - Hypotension [Recovered/Resolved]
  - Off label use [Unknown]
  - Chills [Recovered/Resolved]
  - Loss of consciousness [Recovered/Resolved]
  - Tremor [Recovered/Resolved]
